FAERS Safety Report 11137849 (Version 1)
Quarter: 2015Q2

REPORT INFORMATION
  Report Type: Spontaneous
  Country: US (occurrence: US)
  Receive Date: 20150526
  Receipt Date: 20150526
  Transmission Date: 20150821
  Serious: No
  Sender: FDA-Public Use
  Company Number: US-MALLINCKRODT-T201500263

PATIENT
  Sex: Male

DRUGS (2)
  1. H.P. ACTHAR [Suspect]
     Active Substance: CORTICOTROPIN
     Dosage: 80 UNITS, 2 TIMES WKLY
     Route: 058
  2. H.P. ACTHAR [Suspect]
     Active Substance: CORTICOTROPIN
     Indication: PROTEINURIA
     Dosage: 1 ML, 2 TIMES WKLY
     Route: 030
     Dates: start: 20140909

REACTIONS (7)
  - Crying [Unknown]
  - Depressed mood [Unknown]
  - Urinary retention [Unknown]
  - Weight increased [Unknown]
  - Oedema [Unknown]
  - Blood pressure increased [Unknown]
  - Mood altered [Unknown]
